FAERS Safety Report 25210397 (Version 1)
Quarter: 2025Q2

REPORT INFORMATION
  Report Type: Spontaneous
  Country: US (occurrence: US)
  Receive Date: 20250417
  Receipt Date: 20250417
  Transmission Date: 20250716
  Serious: Yes (Other)
  Sender: SANOFI AVENTIS
  Company Number: US-SA-2025SA109526

PATIENT
  Sex: Female

DRUGS (10)
  1. KEVZARA [Suspect]
     Active Substance: SARILUMAB
     Indication: Rheumatoid arthritis
     Dosage: 200 MG, QOW
     Route: 058
  2. KEVZARA [Suspect]
     Active Substance: SARILUMAB
     Dosage: 200 MG, QOW
     Route: 058
  3. ASTEPRO [Concomitant]
     Active Substance: AZELASTINE HYDROCHLORIDE
  4. CYCLOBENZAPRINE [Concomitant]
     Active Substance: CYCLOBENZAPRINE
  5. DIAZEPAM [Concomitant]
     Active Substance: DIAZEPAM
  6. HYDROXYCHLOROQUINE [Concomitant]
     Active Substance: HYDROXYCHLOROQUINE
  7. OXYCODONE HYDROCHLORIDE [Concomitant]
     Active Substance: OXYCODONE HYDROCHLORIDE
  8. OZEMPIC [Concomitant]
     Active Substance: SEMAGLUTIDE
  9. PREDNISONE [Concomitant]
     Active Substance: PREDNISONE
  10. TRILIPIX [Concomitant]
     Active Substance: FENOFIBRIC ACID

REACTIONS (2)
  - Rheumatoid arthritis [Recovered/Resolved]
  - Sinusitis [Recovered/Resolved]
